FAERS Safety Report 16967248 (Version 1)
Quarter: 2019Q4

REPORT INFORMATION
  Report Type: Spontaneous
  Country: US (occurrence: US)
  Receive Date: 20190910
  Receipt Date: 20190910
  Transmission Date: 20200122
  Serious: Yes (Life-Threatening)
  Sender: FDA-Public Use
  Company Number: None

PATIENT
  Age: 76 Year
  Sex: Male
  Weight: 94 kg

DRUGS (1)
  1. DAPSONE. [Suspect]
     Active Substance: DAPSONE
     Indication: INTERSTITIAL LUNG DISEASE
     Route: 048
     Dates: start: 20190628, end: 20190711

REACTIONS (2)
  - Agranulocytosis [None]
  - Thrombocytopenia [None]

NARRATIVE: CASE EVENT DATE: 20190711
